FAERS Safety Report 4942738-3 (Version None)
Quarter: 2006Q1

REPORT INFORMATION
  Report Type: 
  Country: None (occurrence: None)
  Receive Date: 20060223
  Receipt Date: 20060206
  Transmission Date: 20060701
  Serious: Yes (Death)
  Sender: FDA-Public Use
  Company Number: THYM-10884

PATIENT

DRUGS (1)
  1. THYMOGLOBULIN [Suspect]

REACTIONS (2)
  - INFECTION [None]
  - MULTI-ORGAN FAILURE [None]
